FAERS Safety Report 8053485-6 (Version None)
Quarter: 2012Q1

REPORT INFORMATION
  Report Type: 
  Country: None (occurrence: None)
  Receive Date: 20120118
  Receipt Date: 20120113
  Transmission Date: 20120608
  Serious: Yes (Other)
  Sender: FDA-Public Use
  Company Number: BR-PFIZER INC-2012011597

PATIENT
  Age: 68 Year
  Sex: Female

DRUGS (8)
  1. ASPIRIN [Concomitant]
     Indication: BLOOD PRESSURE INCREASED
  2. MICARDIS [Concomitant]
     Indication: BLOOD PRESSURE INCREASED
     Dosage: UNK
  3. VARENICLINE TARTRATE [Suspect]
     Indication: TOBACCO USER
     Dosage: UNK
     Route: 048
     Dates: start: 20120102, end: 20120101
  4. VARENICLINE TARTRATE [Suspect]
     Dosage: 1 MG, 2X/DAY
     Route: 048
     Dates: start: 20120101
  5. ASPIRIN [Concomitant]
     Indication: CARDIAC DISORDER
     Dosage: UNK
  6. METOPROLOL SUCCINATE [Concomitant]
     Indication: BLOOD PRESSURE INCREASED
     Dosage: UNK
  7. LIPIDIL [Concomitant]
     Indication: CARDIAC DISORDER
     Dosage: UNK
  8. METFORMIN HYDROCHLORIDE [Concomitant]
     Indication: GLUCOSE TOLERANCE IMPAIRED
     Dosage: 500 MG, 1X/DAY (DAILY)

REACTIONS (6)
  - NAUSEA [None]
  - CARDIAC FAILURE [None]
  - DYSPNOEA [None]
  - MALAISE [None]
  - CHILLS [None]
  - ABDOMINAL DISTENSION [None]
